FAERS Safety Report 9736705 (Version 2)
Quarter: 2015Q3

REPORT INFORMATION
  Report Type: Spontaneous
  Country: US (occurrence: US)
  Receive Date: 20131206
  Receipt Date: 20150804
  Transmission Date: 20151125
  Serious: No
  Sender: FDA-Public Use
  Company Number: US-GILEAD-2009-0023613

PATIENT
  Age: 75 Year
  Sex: Male
  Weight: 80.74 kg

DRUGS (15)
  1. ALBUTEROL. [Concomitant]
     Active Substance: ALBUTEROL
  2. LETAIRIS [Suspect]
     Active Substance: AMBRISENTAN
     Indication: PULMONARY ARTERIAL HYPERTENSION
     Route: 048
     Dates: start: 20090627
  3. FLOMAX [Concomitant]
     Active Substance: TAMSULOSIN HYDROCHLORIDE
  4. TORSEMIDE. [Concomitant]
     Active Substance: TORSEMIDE
  5. LISINOPRIL. [Concomitant]
     Active Substance: LISINOPRIL
  6. FINASTERIDE. [Concomitant]
     Active Substance: FINASTERIDE
  7. VITAMIN D [Concomitant]
     Active Substance: CHOLECALCIFEROL
  8. COUMADIN [Concomitant]
     Active Substance: WARFARIN SODIUM
  9. IPRATROPIUM BR [Concomitant]
  10. ZEMPLAR [Concomitant]
     Active Substance: PARICALCITOL
  11. PROSCAR [Concomitant]
     Active Substance: FINASTERIDE
  12. REVATIO [Concomitant]
     Active Substance: SILDENAFIL CITRATE
  13. ZOLPIDEM [Concomitant]
     Active Substance: ZOLPIDEM\ZOLPIDEM TARTRATE
  14. ALPRAZOLAM. [Concomitant]
     Active Substance: ALPRAZOLAM
  15. PREVACID [Concomitant]
     Active Substance: LANSOPRAZOLE

REACTIONS (4)
  - Fluid retention [Unknown]
  - Skin irritation [Unknown]
  - Oedema [Unknown]
  - Constipation [Unknown]
